FAERS Safety Report 5782407-3 (Version None)
Quarter: 2008Q2

REPORT INFORMATION
  Report Type: 
  Country: None (occurrence: None)
  Receive Date: 20080623
  Receipt Date: 20080529
  Transmission Date: 20081010
  Serious: Yes (Other)
  Sender: FDA-Public Use
  Company Number: PHBS2007BR13013

PATIENT
  Sex: Male
  Weight: 68 kg

DRUGS (1)
  1. DIOVAN [Suspect]
     Indication: HYPERTENSION
     Dosage: 160 MG, QD
     Route: 048

REACTIONS (10)
  - DRY SKIN [None]
  - EYE SWELLING [None]
  - HYPERSENSITIVITY [None]
  - INSOMNIA [None]
  - OEDEMA PERIPHERAL [None]
  - PRURITUS [None]
  - RASH ERYTHEMATOUS [None]
  - SKIN HAEMORRHAGE [None]
  - SKIN WRINKLING [None]
  - TINNITUS [None]
